FAERS Safety Report 24119591 (Version 1)
Quarter: 2024Q3

REPORT INFORMATION
  Report Type: Report from Study
  Country: IT (occurrence: IT)
  Receive Date: 20240722
  Receipt Date: 20240722
  Transmission Date: 20241017
  Serious: Yes (Other)
  Sender: SANOFI AVENTIS
  Company Number: IT-SA-2024SA211800

PATIENT
  Age: 43 Year
  Sex: Female

DRUGS (1)
  1. DUPILUMAB [Suspect]
     Active Substance: DUPILUMAB
     Indication: Dermatitis atopic
     Dosage: UNK

REACTIONS (4)
  - Atopic keratoconjunctivitis [Recovering/Resolving]
  - Meibomian gland dysfunction [Recovering/Resolving]
  - Conjunctival papillae [Recovering/Resolving]
  - Subconjunctival fibrosis [Recovering/Resolving]
